FAERS Safety Report 22035051 (Version 1)
Quarter: 2023Q1

REPORT INFORMATION
  Report Type: Spontaneous
  Country: None (occurrence: US)
  Receive Date: 20230224
  Receipt Date: 20230224
  Transmission Date: 20230418
  Serious: No
  Sender: FDA-Public Use
  Company Number: US-Kindeva Drug Delivery L.P.-2138394

PATIENT
  Age: 5 Year
  Sex: Male

DRUGS (3)
  1. ALBUTEROL SULFATE [Suspect]
     Active Substance: ALBUTEROL SULFATE
     Route: 055
  2. FLOVENT [Concomitant]
     Active Substance: FLUTICASONE PROPIONATE
  3. Zyrtec Medical [Concomitant]

REACTIONS (4)
  - Drug delivery system malfunction [Unknown]
  - Nasopharyngitis [Unknown]
  - Device malfunction [Unknown]
  - Asthma [Unknown]
